FAERS Safety Report 7409796-8 (Version None)
Quarter: 2011Q2

REPORT INFORMATION
  Report Type: 
  Country: None (occurrence: None)
  Receive Date: 20110412
  Receipt Date: 20110405
  Transmission Date: 20111010
  Serious: Yes (Hospitalization)
  Sender: FDA-Public Use
  Company Number: US-ABBOTT-11P-163-0717487-00

PATIENT
  Sex: Female
  Weight: 75.818 kg

DRUGS (13)
  1. HUMIRA [Suspect]
     Indication: PSORIASIS
     Dates: start: 20080301, end: 20101001
  2. ATARAX [Concomitant]
     Indication: PRURITUS
  3. LOVAZA [Concomitant]
     Indication: BLOOD TRIGLYCERIDES INCREASED
  4. XYZAL [Concomitant]
     Indication: HYPERSENSITIVITY
  5. CYCLOSPORINE [Concomitant]
     Indication: PSORIASIS
     Dates: start: 20110304
  6. NEURONTIN [Concomitant]
     Indication: PAIN
  7. TRIAMCINOLONE [Concomitant]
     Indication: PSORIASIS
  8. EFFEXOR [Concomitant]
     Indication: DEPRESSION
  9. LORTAB [Concomitant]
     Indication: PAIN
  10. ACIPHEX [Concomitant]
     Indication: GASTROOESOPHAGEAL REFLUX DISEASE
  11. HUMIRA [Suspect]
     Indication: PSORIATIC ARTHROPATHY
     Dates: start: 20101201
  12. DIOVAN [Concomitant]
     Indication: HYPERTENSION
  13. ARAVA [Concomitant]
     Indication: PSORIATIC ARTHROPATHY

REACTIONS (4)
  - DRUG INEFFECTIVE [None]
  - INJECTION SITE HAEMATOMA [None]
  - INJECTION SITE PAIN [None]
  - PSORIASIS [None]
